FAERS Safety Report 23954791 (Version 3)
Quarter: 2024Q3

REPORT INFORMATION
  Report Type: Spontaneous
  Country: US (occurrence: None)
  Receive Date: 20240610
  Receipt Date: 20240730
  Transmission Date: 20241016
  Serious: Yes (Hospitalization, Other)
  Sender: OREXO
  Company Number: US-Orexo US, Inc.-ORE202405-000025

PATIENT
  Age: 44 Year
  Sex: Female
  Weight: 68.03 kg

DRUGS (15)
  1. ZUBSOLV [Suspect]
     Active Substance: BUPRENORPHINE HYDROCHLORIDE\NALOXONE HYDROCHLORIDE
     Indication: Pain
     Dosage: UNKNOWN
     Route: 060
     Dates: start: 2017, end: 202403
  2. ZUBSOLV [Suspect]
     Active Substance: BUPRENORPHINE HYDROCHLORIDE\NALOXONE HYDROCHLORIDE
     Dosage: UNKNOWN
     Route: 060
     Dates: start: 2017, end: 202403
  3. ZUBSOLV [Suspect]
     Active Substance: BUPRENORPHINE HYDROCHLORIDE\NALOXONE HYDROCHLORIDE
     Dosage: UNKNOWN
     Route: 060
     Dates: start: 2024
  4. TRELEGY ELLIPTA [Concomitant]
     Active Substance: FLUTICASONE FUROATE\UMECLIDINIUM BROMIDE\VILANTEROL TRIFENATATE
     Indication: Cardiac failure congestive
     Dosage: UNKNOWN
  5. ESTROGENS [Concomitant]
     Active Substance: ESTROGENS
     Indication: Anxiety
     Dosage: UNKNOWN
     Route: 065
  6. LEXAPRO [Concomitant]
     Active Substance: ESCITALOPRAM OXALATE
     Indication: Anxiety
     Dosage: UNKNOWN
     Route: 065
  7. LEVOTHYROXINE [Concomitant]
     Active Substance: LEVOTHYROXINE\LEVOTHYROXINE SODIUM
     Indication: Thyroid disorder
     Dosage: UNKNOWN
     Route: 065
  8. FAMOTIDINE [Concomitant]
     Active Substance: FAMOTIDINE
     Indication: Gastrointestinal disorder
     Dosage: UNKNOWN
     Route: 065
  9. OMEPRAZOLE [Concomitant]
     Active Substance: OMEPRAZOLE
     Indication: Gastrointestinal disorder
     Dosage: UNKNOWN
     Route: 065
  10. CLONIDINE [Concomitant]
     Active Substance: CLONIDINE
     Indication: Post-traumatic stress disorder
     Dosage: UNKNOWN
     Route: 065
  11. ZOFRAN [Concomitant]
     Active Substance: ONDANSETRON HYDROCHLORIDE
     Indication: Nausea
     Dosage: UNKNOWN
     Route: 065
  12. DICYCLOMINE [Concomitant]
     Active Substance: DICYCLOMINE HYDROCHLORIDE
     Indication: Gastrointestinal disorder
     Dosage: UNKNOWN
     Route: 065
  13. TOPAMAX [Concomitant]
     Active Substance: TOPIRAMATE
     Indication: Migraine
     Dosage: UNKNOWN
     Route: 065
  14. SEROQUEL [Concomitant]
     Active Substance: QUETIAPINE FUMARATE
     Indication: Sleep disorder
     Dosage: UNKNOWN
     Route: 065
  15. ADDERALL [Concomitant]
     Active Substance: AMPHETAMINE ASPARTATE\AMPHETAMINE SULFATE\DEXTROAMPHETAMINE SACCHARATE\DEXTROAMPHETAMINE SULFATE
     Indication: Product used for unknown indication
     Dosage: UNKNOWN
     Route: 065

REACTIONS (6)
  - Pneumonia bacterial [Unknown]
  - Myocardial infarction [Unknown]
  - Pneumonia viral [Unknown]
  - COVID-19 [Unknown]
  - Treatment noncompliance [Unknown]
  - Drug effective for unapproved indication [Unknown]

NARRATIVE: CASE EVENT DATE: 20170101
